FAERS Safety Report 7867120-0 (Version None)
Quarter: 2011Q4

REPORT INFORMATION
  Report Type: 
  Country: None (occurrence: None)
  Receive Date: 20111028
  Receipt Date: 20111020
  Transmission Date: 20120403
  Serious: Yes (Hospitalization)
  Sender: FDA-Public Use
  Company Number: JP-BRISTOL-MYERS SQUIBB COMPANY-15574791

PATIENT
  Age: 60 Year
  Sex: Female
  Weight: 45 kg

DRUGS (10)
  1. METHOTREXATE [Suspect]
     Dosage: FOR 10 YEARS,UNK-25JAN11,25APR11-ONG
     Route: 048
  2. ORENCIA [Suspect]
     Indication: RHEUMATOID ARTHRITIS
     Dosage: 13DEC10;75MG,07JAN11;500MG, NO OF ADMINISTRATIONS:2
     Route: 041
     Dates: start: 20101129, end: 20110121
  3. ALENDRONATE SODIUM [Concomitant]
  4. VOLTAREN [Concomitant]
     Indication: RHEUMATOID ARTHRITIS
  5. FOLIC ACID [Concomitant]
  6. PREDNISOLONE [Concomitant]
     Indication: RHEUMATOID ARTHRITIS
     Route: 048
  7. ALENDRONATE SODIUM [Concomitant]
  8. SENNOSIDE [Concomitant]
  9. FLUCONAZOLE [Concomitant]
  10. SELBEX [Concomitant]
     Indication: GASTRITIS PROPHYLAXIS

REACTIONS (2)
  - PANCYTOPENIA [None]
  - APLASTIC ANAEMIA [None]
